FAERS Safety Report 10363893 (Version 2)
Quarter: 2014Q3

REPORT INFORMATION
  Report Type: Spontaneous
  Country: CH (occurrence: None)
  Receive Date: 20140801
  Receipt Date: 20140828
  Transmission Date: 20150326
  Serious: Yes (Hospitalization, Disabling, Other)
  Sender: FDA-Public Use
  Company Number: 20140436

PATIENT
  Age: 40 Year
  Sex: Female
  Weight: 60 kg

DRUGS (2)
  1. FERINJECT [Suspect]
     Active Substance: FERRIC CARBOXYMALTOSE
     Indication: ANAEMIA
     Route: 041
     Dates: start: 201110, end: 201203
  2. VITAMIN B12(CYANOCOBALMIN) [Concomitant]

REACTIONS (8)
  - Arthropathy [None]
  - Haemosiderosis [None]
  - Drug prescribing error [None]
  - Drug administration error [None]
  - Iron overload [None]
  - Drug dispensing error [None]
  - Asthenia [None]
  - Abasia [None]

NARRATIVE: CASE EVENT DATE: 2012
